FAERS Safety Report 12932377 (Version 2)
Quarter: 2016Q4

REPORT INFORMATION
  Report Type: Report from Study
  Country: CL (occurrence: CL)
  Receive Date: 20161111
  Receipt Date: 20161206
  Transmission Date: 20170207
  Serious: Yes (Death, Hospitalization)
  Sender: FDA-Public Use
  Company Number: CL-ROCHE-1852442

PATIENT
  Age: 76 Year
  Sex: Male
  Weight: 57.6 kg

DRUGS (14)
  1. PARACETAMOL [Concomitant]
     Active Substance: ACETAMINOPHEN
     Indication: MUSCULOSKELETAL PAIN
  2. ONDANSETRON [Concomitant]
     Active Substance: ONDANSETRON
     Indication: PREMEDICATION
     Route: 065
     Dates: start: 20161014, end: 20161014
  3. RANITIDINE. [Concomitant]
     Active Substance: RANITIDINE
     Route: 065
     Dates: start: 20161104, end: 20161104
  4. ATEZOLIZUMAB [Suspect]
     Active Substance: ATEZOLIZUMAB
     Indication: NON-SMALL CELL LUNG CANCER STAGE IV
     Dosage: THE MOST RECENT DOSE OF ATEZOLIZUMAB, 1200 MG, WAS ADMINISTERED ON 04/NOV/2016.
     Route: 042
     Dates: start: 20160902
  5. PACLITAXEL. [Suspect]
     Active Substance: PACLITAXEL
     Indication: NON-SMALL CELL LUNG CANCER STAGE IV
     Dosage: THE MOST RECENT DOSE OF PACLITAXEL, 328 MG, WAS ADMINISTERED ON 04/NOV/2016.
     Route: 042
     Dates: start: 20160902
  6. ONDANSETRON [Concomitant]
     Active Substance: ONDANSETRON
     Route: 065
     Dates: start: 20161104, end: 20161104
  7. CARBOPLATIN. [Suspect]
     Active Substance: CARBOPLATIN
     Indication: NON-SMALL CELL LUNG CANCER STAGE IV
     Dosage: THE MOST RECENT DOSE OF CARBOPLATIN, 406 MG, WAS ADMINISTERED ON 04/NOV/2016.?AREA UNDER THE CONCENT
     Route: 042
     Dates: start: 20160902
  8. PARACETAMOL [Concomitant]
     Active Substance: ACETAMINOPHEN
     Indication: CHEST PAIN
     Route: 065
     Dates: start: 20160905
  9. PREGABALINA [Concomitant]
     Active Substance: PREGABALIN
     Indication: CHEST PAIN
  10. RANITIDINE. [Concomitant]
     Active Substance: RANITIDINE
     Indication: PREMEDICATION
     Route: 065
     Dates: start: 20161014, end: 20161014
  11. CLORFENAMINA [Concomitant]
     Indication: PREMEDICATION
     Route: 065
     Dates: start: 20161014, end: 20161014
  12. METOCLOPRAMIDA [Concomitant]
     Active Substance: METOCLOPRAMIDE HYDROCHLORIDE
     Route: 065
     Dates: start: 20161104, end: 20161104
  13. CLORFENAMINA [Concomitant]
     Route: 065
     Dates: start: 20161104, end: 20161104
  14. METOCLOPRAMIDA [Concomitant]
     Active Substance: METOCLOPRAMIDE HYDROCHLORIDE
     Indication: PREMEDICATION
     Route: 065
     Dates: start: 20161014, end: 20161014

REACTIONS (1)
  - Pneumonia [Fatal]

NARRATIVE: CASE EVENT DATE: 20161107
